FAERS Safety Report 21052524 (Version 1)
Quarter: 2022Q3

REPORT INFORMATION
  Report Type: Spontaneous
  Country: US (occurrence: None)
  Receive Date: 20220706
  Receipt Date: 20220706
  Transmission Date: 20221027
  Serious: No
  Sender: FDA-Public Use
  Company Number: None

PATIENT
  Age: 69 Year
  Sex: Female
  Weight: 54 kg

DRUGS (9)
  1. RIZATRIPTAN BENZOATE [Suspect]
     Active Substance: RIZATRIPTAN BENZOATE
     Indication: Migraine
     Dosage: OTHER FREQUENCY : 2 A DAY/LIMIT 2DAY;?QUANTITY: 9 TABLETS
     Route: 060
     Dates: start: 20220706, end: 20220706
  2. EMGALITY [Concomitant]
     Active Substance: GALCANEZUMAB-GNLM
  3. MAXALT [Concomitant]
     Active Substance: RIZATRIPTAN BENZOATE
  4. ZOFRAN [Concomitant]
     Active Substance: ONDANSETRON HYDROCHLORIDE
  5. BONIVA [Concomitant]
     Active Substance: IBANDRONATE SODIUM
  6. VITAMINS [Concomitant]
     Active Substance: VITAMINS
  7. CALCIUM [Concomitant]
     Active Substance: CALCIUM
  8. VITAMIN B12 [Concomitant]
     Active Substance: CYANOCOBALAMIN
  9. VITAMIN D3 [Concomitant]
     Active Substance: CHOLECALCIFEROL

REACTIONS (5)
  - Product substitution issue [None]
  - Therapeutic response delayed [None]
  - Product solubility abnormal [None]
  - Product after taste [None]
  - Nausea [None]

NARRATIVE: CASE EVENT DATE: 20220706
